FAERS Safety Report 24112295 (Version 1)
Quarter: 2024Q3

REPORT INFORMATION
  Report Type: Report from Study
  Country: CA (occurrence: None)
  Receive Date: 20240719
  Receipt Date: 20240719
  Transmission Date: 20241016
  Serious: Yes (Other)
  Sender: ASTRAZENECA
  Company Number: 2020SE18814

PATIENT
  Sex: Male

DRUGS (1)
  1. IMFINZI [Suspect]
     Active Substance: DURVALUMAB
     Indication: Non-small cell lung cancer stage IIIA
     Route: 042
     Dates: start: 20190123

REACTIONS (3)
  - Immunotoxicity [Unknown]
  - Mononeuropathy multiplex [Unknown]
  - Rash [Unknown]
